FAERS Safety Report 25795421 (Version 1)
Quarter: 2025Q3

REPORT INFORMATION
  Report Type: Spontaneous
  Country: CN (occurrence: CN)
  Receive Date: 20250912
  Receipt Date: 20250912
  Transmission Date: 20251021
  Serious: Yes (Other)
  Sender: RANBAXY
  Company Number: CN-SUN PHARMACEUTICAL INDUSTRIES LTD-2025R1-526688

PATIENT
  Age: 55 Year
  Sex: Male

DRUGS (1)
  1. CLOPIDOGREL [Suspect]
     Active Substance: CLOPIDOGREL BISULFATE
     Indication: Antiplatelet therapy
     Route: 065

REACTIONS (3)
  - Drug ineffective [Unknown]
  - Gait disturbance [Recovering/Resolving]
  - Cerebral infarction [Unknown]

NARRATIVE: CASE EVENT DATE: 20220901
